FAERS Safety Report 14386639 (Version 1)
Quarter: 2018Q1

REPORT INFORMATION
  Report Type: Spontaneous
  Country: US (occurrence: US)
  Receive Date: 20180115
  Receipt Date: 20180115
  Transmission Date: 20180509
  Serious: Yes (Other)
  Sender: FDA-Public Use
  Company Number: US-SA-2017SA096525

PATIENT
  Sex: Female
  Weight: 77.11 kg

DRUGS (4)
  1. CALCIUM [Concomitant]
     Active Substance: CALCIUM
     Indication: BONE DISORDER
     Route: 048
     Dates: start: 2015
  2. ONE-A-DAY [Concomitant]
     Active Substance: VITAMINS
     Route: 048
     Dates: start: 2015
  3. TAXOTERE [Suspect]
     Active Substance: DOCETAXEL
     Route: 065
     Dates: start: 2015, end: 2015
  4. VITAMIN B6 [Concomitant]
     Active Substance: PYRIDOXINE HYDROCHLORIDE
     Dosage: DOSE:1000 UNIT(S)
     Route: 048
     Dates: start: 2015

REACTIONS (2)
  - Alopecia [Unknown]
  - Onycholysis [Unknown]
